FAERS Safety Report 8850170 (Version 1)
Quarter: 2012Q4

REPORT INFORMATION
  Report Type: Report from Study
  Country: US (occurrence: US)
  Receive Date: 20121019
  Receipt Date: 20121019
  Transmission Date: 20130627
  Serious: Yes (Hospitalization)
  Sender: FDA-Public Use
  Company Number: US-VIIV HEALTHCARE LIMITED-B0755894A

PATIENT
  Age: 48 Year
  Sex: Male

DRUGS (11)
  1. MARAVIROC [Suspect]
     Indication: HIV INFECTION
     Dosage: 150MG Twice per day
     Route: 048
     Dates: start: 20100127
  2. TENOFOVIR [Suspect]
     Dosage: 300MG Per day
     Route: 048
     Dates: end: 20120825
  3. KALETRA [Concomitant]
     Indication: HIV INFECTION
     Dosage: 2TABS Twice per day
     Route: 048
  4. ABACAVIR [Concomitant]
     Indication: HIV INFECTION
     Route: 065
     Dates: start: 20110921
  5. TRUVADA [Concomitant]
     Indication: HIV INFECTION
     Dosage: 1TAB Per day
     Route: 048
  6. ZOSYN [Concomitant]
  7. CIPRO [Concomitant]
  8. AZITHROMYCIN [Concomitant]
  9. FLUCONAZOLE [Concomitant]
  10. BACTRIM DS [Concomitant]
  11. HYDROCORTISONE [Concomitant]

REACTIONS (4)
  - Adrenal insufficiency [Recovered/Resolved]
  - Renal failure acute [Recovered/Resolved]
  - Hepatic enzyme increased [Recovered/Resolved]
  - T-cell lymphoma [Recovered/Resolved]
